FAERS Safety Report 6525445-5 (Version None)
Quarter: 2010Q1

REPORT INFORMATION
  Report Type: 
  Country: None (occurrence: None)
  Receive Date: 20100104
  Receipt Date: 20091223
  Transmission Date: 20100710
  Serious: Yes (Other)
  Sender: FDA-Public Use
  Company Number: CHPA2009GB24087

PATIENT
  Age: 44 Year
  Sex: Male

DRUGS (7)
  1. SCOPOLAMINE [Suspect]
     Dosage: 1 DF, Q72H
     Route: 061
     Dates: start: 20090801
  2. ASPIRIN AND DIPYRIDAMOLE [Concomitant]
     Dosage: 2 DF, QD
  3. CLOBAZAM [Concomitant]
     Dosage: 10 ML, BID
  4. LEVETIRACETAM [Concomitant]
     Dosage: 1500 UNK, ONCE/SINGLE
  5. MIDAZOLAM HCL [Concomitant]
     Dosage: 10 ML, PRN
  6. SENOKOT                                 /UNK/ [Concomitant]
     Dosage: 10 MG, QD
  7. TEGRETOL [Concomitant]
     Dosage: 1000 MG, ONCE/SINGLE

REACTIONS (6)
  - APPLICATION SITE ERYTHEMA [None]
  - APPLICATION SITE INFLAMMATION [None]
  - PAIN [None]
  - PRURITUS [None]
  - SKIN DISORDER [None]
  - SKIN REACTION [None]
